FAERS Safety Report 6083731-X (Version None)
Quarter: 2009Q1

REPORT INFORMATION
  Report Type: 
  Country: None (occurrence: None)
  Receive Date: 20090219
  Receipt Date: 20090213
  Transmission Date: 20090719
  Serious: Yes (Hospitalization, Other)
  Sender: FDA-Public Use
  Company Number: PHHY2009JP02504

PATIENT

DRUGS (9)
  1. NEORAL [Suspect]
     Indication: BONE MARROW TRANSPLANT
     Dosage: UNK
     Dates: start: 20040601, end: 20040601
  2. NEORAL [Suspect]
     Indication: PROPHYLAXIS AGAINST GRAFT VERSUS HOST DISEASE
  3. CYCLOPHOSPHAMIDE [Suspect]
     Indication: GRAFT VERSUS HOST DISEASE
     Dosage: 1000 MG/M2
     Route: 042
  4. CYCLOPHOSPHAMIDE [Suspect]
     Dosage: 1 MG/M2
  5. TACROLIMUS [Concomitant]
     Indication: BONE MARROW TRANSPLANT
  6. METHOTREXATE [Concomitant]
     Indication: BONE MARROW TRANSPLANT
  7. METHOTREXATE [Concomitant]
     Indication: PROPHYLAXIS AGAINST GRAFT VERSUS HOST DISEASE
  8. PREDNISOLONE [Concomitant]
     Indication: ACUTE GRAFT VERSUS HOST DISEASE
  9. MYCOPHENOLATE MOFETIL [Concomitant]
     Indication: CHRONIC GRAFT VERSUS HOST DISEASE
     Route: 048

REACTIONS (11)
  - ACUTE GRAFT VERSUS HOST DISEASE [None]
  - ACUTE RESPIRATORY DISTRESS SYNDROME [None]
  - CARDIAC FAILURE [None]
  - CHRONIC GRAFT VERSUS HOST DISEASE [None]
  - FASCIITIS [None]
  - INFECTION [None]
  - JOINT CONTRACTURE [None]
  - LIVER DISORDER [None]
  - MUSCULAR WEAKNESS [None]
  - RASH [None]
  - SCLEREMA [None]
